FAERS Safety Report 10345213 (Version 2)
Quarter: 2014Q3

REPORT INFORMATION
  Report Type: Spontaneous
  Country: CO (occurrence: CO)
  Receive Date: 20140728
  Receipt Date: 20140730
  Transmission Date: 20150326
  Serious: Yes (Other)
  Sender: FDA-Public Use
  Company Number: CO-PFIZER INC-2014206450

PATIENT
  Sex: Male

DRUGS (1)
  1. CARDURAN XL [Suspect]
     Active Substance: DOXAZOSIN MESYLATE
     Dosage: 4 MG, UNK

REACTIONS (2)
  - Hypotension [Unknown]
  - Eye disorder [Unknown]

NARRATIVE: CASE EVENT DATE: 20140721
